FAERS Safety Report 7796579-2 (Version None)
Quarter: 2011Q4

REPORT INFORMATION
  Report Type: 
  Country: None (occurrence: None)
  Receive Date: 20111005
  Receipt Date: 20110929
  Transmission Date: 20120403
  Serious: Yes (Life-Threatening, Disabling, Other)
  Sender: FDA-Public Use
  Company Number: JP-PFIZER INC-2011127833

PATIENT
  Age: 68 Year
  Sex: Female
  Weight: 47.4 kg

DRUGS (14)
  1. URSODEOXYCHOLIC ACID [Concomitant]
     Indication: HEPATITIS C
     Dosage: 100 MG, 3X/DAY
     Route: 048
     Dates: start: 20000205, end: 20110524
  2. LYRICA [Suspect]
     Indication: DIABETIC NEUROPATHY
     Dosage: 75 MG, 2X/DAY
     Route: 048
     Dates: start: 20110324, end: 20110324
  3. AMARYL [Concomitant]
     Dosage: 3 MG, 1X/DAY
     Route: 048
     Dates: start: 20070725
  4. BASEN [Concomitant]
     Indication: DIABETES MELLITUS
     Dosage: 0.2 MG, 2X/DAY
     Route: 048
     Dates: start: 20050520
  5. ATELEC [Concomitant]
     Indication: HYPERTENSION
     Dosage: 10 MG, 1X/DAY
     Route: 048
     Dates: start: 20041204
  6. ACTOS [Concomitant]
     Indication: DIABETES MELLITUS
     Dosage: 30 MG, 1X/DAY
     Route: 048
     Dates: start: 20080404
  7. KINEDAK [Concomitant]
     Indication: DIABETIC NEUROPATHY
     Dosage: 50 MG, 3X/DAY
     Route: 048
     Dates: start: 20050415
  8. ANPLAG [Concomitant]
     Indication: ARTERIOSCLEROSIS OBLITERANS
     Dosage: 100 MG, 3X/DAY
     Route: 048
     Dates: start: 20090121
  9. DEPAS [Concomitant]
     Indication: INSOMNIA
     Dosage: 0.5 MG, 1X/DAY
     Route: 048
     Dates: start: 20010207
  10. LENDORMIN [Concomitant]
     Indication: INSOMNIA
     Dosage: 0.25 MG, 1X/DAY
     Route: 048
     Dates: start: 20021126
  11. LOXONIN [Concomitant]
     Indication: HEADACHE
     Dosage: 60 MG, 1X/DAY
     Route: 048
     Dates: start: 20090323
  12. AMARYL [Concomitant]
     Indication: DIABETES MELLITUS
     Dosage: 1 MG, 1X/DAY
     Route: 048
     Dates: end: 20051205
  13. AMARYL [Concomitant]
     Dosage: 2 MG, 1X/DAY
     Route: 048
     Dates: start: 20051206, end: 20070724
  14. LOSARTAN POTASSIUM [Concomitant]
     Indication: HYPERTENSION
     Dosage: 50 MG, 1X/DAY
     Route: 048
     Dates: start: 20080218

REACTIONS (3)
  - FALL [None]
  - DIZZINESS [None]
  - WRIST FRACTURE [None]
